FAERS Safety Report 5596550-5 (Version None)
Quarter: 2008Q1

REPORT INFORMATION
  Report Type: 
  Country: None (occurrence: None)
  Receive Date: 20080118
  Receipt Date: 20080108
  Transmission Date: 20080703
  Serious: Yes (Hospitalization, Other)
  Sender: FDA-Public Use
  Company Number: US-PFIZER INC-2008002279

PATIENT
  Age: 30 Year
  Sex: Male
  Weight: 31.8 kg

DRUGS (4)
  1. VFEND [Suspect]
     Indication: BRONCHOPULMONARY ASPERGILLOSIS
     Route: 042
  2. VFEND [Suspect]
     Route: 048
     Dates: end: 20080105
  3. KEPPRA [Concomitant]
  4. NEXIUM [Concomitant]

REACTIONS (3)
  - ASPERGILLOSIS [None]
  - CARDIOMYOPATHY [None]
  - EJECTION FRACTION DECREASED [None]
